FAERS Safety Report 8161442-4 (Version None)
Quarter: 2012Q1

REPORT INFORMATION
  Report Type: 
  Country: None (occurrence: None)
  Receive Date: 20120224
  Receipt Date: 20120221
  Transmission Date: 20120608
  Serious: Yes (Death, Hospitalization, Other)
  Sender: FDA-Public Use
  Company Number: US-AMGEN-USASP2012010101

PATIENT
  Age: 77 Year
  Sex: Female
  Weight: 56.236 kg

DRUGS (4)
  1. NADOLOL [Concomitant]
  2. NEUPOGEN [Suspect]
     Indication: PRODUCT USED FOR UNKNOWN INDICATION
  3. SPIRONOLACTONE [Concomitant]
  4. SYNTHROID [Concomitant]

REACTIONS (4)
  - HYPOTENSION [None]
  - ANAEMIA [None]
  - INTRA-ABDOMINAL HAEMORRHAGE [None]
  - ABDOMINAL PAIN [None]
